FAERS Safety Report 24534427 (Version 1)
Quarter: 2024Q4

REPORT INFORMATION
  Report Type: Spontaneous
  Country: US (occurrence: None)
  Receive Date: 20241021
  Receipt Date: 20241021
  Transmission Date: 20250115
  Serious: Yes (Disabling)
  Sender: Public
  Company Number: None

PATIENT
  Age: 40 Year
  Sex: Female
  Weight: 69.75 kg

DRUGS (1)
  1. ZEPBOUND [Suspect]
     Active Substance: TIRZEPATIDE
     Indication: Overweight
     Dates: start: 20240201, end: 20241007

REACTIONS (2)
  - Gallbladder disorder [None]
  - Cholelithiasis [None]

NARRATIVE: CASE EVENT DATE: 20241017
